FAERS Safety Report 10020621 (Version 3)
Quarter: 2014Q2

REPORT INFORMATION
  Report Type: Spontaneous
  Country: US (occurrence: US)
  Receive Date: 20140319
  Receipt Date: 20140416
  Transmission Date: 20141212
  Serious: Yes (Other)
  Sender: FDA-Public Use
  Company Number: CHPA2014US003992

PATIENT
  Age: 67 Year
  Sex: Female

DRUGS (3)
  1. THERAFLU VAPOR PATCH [Suspect]
     Indication: NASOPHARYNGITIS
     Dosage: 1 DF, FOR 16 HOURS, DAILY
     Route: 062
     Dates: start: 2010
  2. THERAFLU VAPOR PATCH [Suspect]
     Indication: OFF LABEL USE
     Dosage: 1 DF, FOR 16 HOURS, DAILY
     Route: 062
  3. VITAMIIN C [Concomitant]
     Dosage: 1000 MG, UNK

REACTIONS (1)
  - Bronchitis [Recovered/Resolved]
